FAERS Safety Report 5360394-X (Version None)
Quarter: 2007Q2

REPORT INFORMATION
  Report Type: 
  Country: None (occurrence: None)
  Receive Date: 20070614
  Receipt Date: 20070531
  Transmission Date: 20071010
  Serious: Yes (Hospitalization)
  Sender: FDA-Public Use
  Company Number: 2007SP002083

PATIENT
  Age: 77 Year
  Sex: Female
  Weight: 87.3 kg

DRUGS (9)
  1. XOPENEX [Suspect]
     Indication: CHRONIC OBSTRUCTIVE PULMONARY DISEASE
     Dosage: 90 UG;PRN;INHALATION
     Route: 055
     Dates: start: 20070523
  2. LISINOPRIL [Concomitant]
  3. LUNESTA [Concomitant]
  4. ASPIRIN [Concomitant]
  5. IBUPROFEN [Concomitant]
  6. ATROVENT [Concomitant]
  7. DOLOMITE [Concomitant]
  8. VITAMIN B COMPLEX CAP [Concomitant]
  9. PRAVASTATIN [Concomitant]

REACTIONS (9)
  - ANGINA PECTORIS [None]
  - ASTHENIA [None]
  - BLOOD GLUCOSE INCREASED [None]
  - BLOOD PRESSURE SYSTOLIC INCREASED [None]
  - HYPERHIDROSIS [None]
  - NAUSEA [None]
  - PROTEIN URINE PRESENT [None]
  - RHONCHI [None]
  - VOMITING [None]
